FAERS Safety Report 5536204-4 (Version None)
Quarter: 2007Q4

REPORT INFORMATION
  Report Type: 
  Country: None (occurrence: None)
  Receive Date: 20071206
  Receipt Date: 20071126
  Transmission Date: 20080405
  Serious: Yes (Hospitalization)
  Sender: FDA-Public Use
  Company Number: US-PFIZER INC-2007074879

PATIENT
  Age: 40 Year
  Sex: Female
  Weight: 62 kg

DRUGS (13)
  1. LYRICA [Suspect]
     Indication: NEURALGIA
     Dates: start: 20070130, end: 20070322
  2. HEPARIN [Suspect]
     Indication: THROMBOSIS PROPHYLAXIS
     Route: 058
     Dates: start: 20070320, end: 20070322
  3. HYDROCHLOROTHIAZIDE [Concomitant]
     Dates: start: 20070320, end: 20070321
  4. LISINOPRIL [Concomitant]
     Dates: start: 20070320, end: 20070321
  5. ONDANSETRON [Concomitant]
     Route: 042
     Dates: start: 20070323, end: 20070327
  6. CARVEDILOL [Concomitant]
     Route: 048
     Dates: start: 20070321, end: 20070330
  7. DILTIAZEM [Concomitant]
     Route: 048
     Dates: start: 20070321, end: 20070330
  8. HYDRALAZINE [Concomitant]
     Route: 048
     Dates: start: 20070322, end: 20070330
  9. SUCRALFATE [Concomitant]
     Dates: start: 20070320, end: 20070328
  10. TEGASEROD [Concomitant]
     Dates: start: 20070320, end: 20070328
  11. SERTRALINE [Concomitant]
     Route: 048
     Dates: start: 20070320, end: 20070330
  12. AMBIEN [Concomitant]
  13. GABAPENTIN [Concomitant]
     Dates: start: 20070320, end: 20070330

REACTIONS (4)
  - HEPARIN-INDUCED THROMBOCYTOPENIA [None]
  - HYPERTENSIVE CRISIS [None]
  - NAUSEA [None]
  - VOMITING [None]
